FAERS Safety Report 10426890 (Version 1)
Quarter: 2014Q3

REPORT INFORMATION
  Report Type: Spontaneous
  Country: US (occurrence: None)
  Receive Date: 20140902
  Receipt Date: 20140902
  Transmission Date: 20150326
  Serious: No
  Sender: FDA-Public Use
  Company Number: None

PATIENT
  Age: 35 Year
  Sex: Female
  Weight: 67.13 kg

DRUGS (1)
  1. TYSABRI [Suspect]
     Active Substance: NATALIZUMAB
     Indication: MULTIPLE SCLEROSIS
     Dosage: MONTHLY  INTO A VEIN
     Route: 042

REACTIONS (3)
  - Chills [None]
  - Infusion related reaction [None]
  - Heart rate decreased [None]

NARRATIVE: CASE EVENT DATE: 20140815
